FAERS Safety Report 5209166-7 (Version None)
Quarter: 2007Q1

REPORT INFORMATION
  Report Type: 
  Country: None (occurrence: None)
  Receive Date: 20070111
  Receipt Date: 20070104
  Transmission Date: 20070707
  Serious: Yes (Hospitalization, Other)
  Sender: FDA-Public Use
  Company Number: 2006SP006973

PATIENT
  Age: 63 Year
  Sex: Male
  Weight: 73 kg

DRUGS (5)
  1. DESLORATADINE [Suspect]
     Indication: SEASONAL ALLERGY
     Dosage: 5 MG; QD; PO
     Route: 048
     Dates: start: 20060515, end: 20060515
  2. XATRAL (ALFUZOSIN) [Suspect]
     Indication: BENIGN PROSTATIC HYPERPLASIA
     Dosage: 10 MG; QD; PO
     Route: 048
     Dates: start: 20060515, end: 20060515
  3. AMIODARONE (CON.) [Concomitant]
  4. DIGOXIN (CON.) [Concomitant]
  5. VITAMIN B6 (CON.) [Concomitant]

REACTIONS (6)
  - BUNDLE BRANCH BLOCK LEFT [None]
  - DIZZINESS [None]
  - ELECTROCARDIOGRAM QT PROLONGED [None]
  - HYPERHIDROSIS [None]
  - SINUS BRADYCARDIA [None]
  - SYNCOPE [None]
